FAERS Safety Report 10084886 (Version 4)
Quarter: 2014Q2

REPORT INFORMATION
  Report Type: Spontaneous
  Country: US (occurrence: US)
  Receive Date: 20140417
  Receipt Date: 20140610
  Transmission Date: 20141212
  Serious: Yes (Hospitalization, Disabling, Other)
  Sender: FDA-Public Use
  Company Number: US-009507513-1112USA02941

PATIENT
  Sex: Male
  Weight: 115.19 kg

DRUGS (1)
  1. PROPECIA [Suspect]
     Indication: ANDROGENETIC ALOPECIA
     Dosage: 1 MG, QD
     Route: 048
     Dates: start: 2007, end: 2011

REACTIONS (29)
  - Anxiety [Not Recovered/Not Resolved]
  - Intervertebral disc protrusion [Not Recovered/Not Resolved]
  - Depressed mood [Not Recovered/Not Resolved]
  - Semen volume decreased [Not Recovered/Not Resolved]
  - Libido decreased [Not Recovered/Not Resolved]
  - Erectile dysfunction [Not Recovered/Not Resolved]
  - Testicular pain [Not Recovered/Not Resolved]
  - Blood testosterone decreased [Not Recovered/Not Resolved]
  - Hypothyroidism [Unknown]
  - Secondary hypertension [Unknown]
  - Weight increased [Unknown]
  - Sleep disorder [Not Recovered/Not Resolved]
  - Pain [Unknown]
  - Sexual dysfunction [Not Recovered/Not Resolved]
  - Gynaecomastia [Unknown]
  - Cataract [Unknown]
  - Hypogonadism [Not Recovered/Not Resolved]
  - Libido decreased [Recovering/Resolving]
  - Performance status decreased [Not Recovered/Not Resolved]
  - Fatigue [Not Recovered/Not Resolved]
  - Body height decreased [Unknown]
  - Asthenia [Recovering/Resolving]
  - Exercise tolerance decreased [Unknown]
  - Panic attack [Not Recovered/Not Resolved]
  - Malaise [Unknown]
  - Increased appetite [Unknown]
  - Myocardial infarction [Unknown]
  - Gastrooesophageal reflux disease [Unknown]
  - Dehydration [Unknown]
